FAERS Safety Report 6677436-1 (Version None)
Quarter: 2010Q2

REPORT INFORMATION
  Report Type: 
  Country: None (occurrence: None)
  Receive Date: 20100412
  Receipt Date: 20100212
  Transmission Date: 20101027
  Serious: No
  Sender: FDA-Public Use
  Company Number: US-ALEXION-A201000176

PATIENT
  Sex: Male

DRUGS (7)
  1. SOLIRIS [Suspect]
     Indication: PAROXYSMAL NOCTURNAL HAEMOGLOBINURIA
     Dosage: STUDY E05, UNK
     Route: 042
     Dates: start: 20050101
  2. SOLIRIS [Suspect]
     Dosage: 900 MG, Q2W
     Route: 042
     Dates: start: 20050907, end: 20060518
  3. SOLIRIS [Suspect]
     Dosage: 1200 MG, Q2W
     Route: 042
     Dates: start: 20070101
  4. SOLIRIS [Suspect]
     Dosage: 900 MG, Q12D
     Route: 042
  5. SOLIRIS [Suspect]
     Dosage: 1200 MG, Q2W
     Route: 042
  6. SOLIRIS [Suspect]
     Dosage: 1500 MG, Q2W
     Route: 042
     Dates: start: 20091111
  7. HUMIRA [Concomitant]
     Dosage: Q10 DAYS

REACTIONS (1)
  - HEADACHE [None]
